FAERS Safety Report 5298619-1 (Version None)
Quarter: 2007Q2

REPORT INFORMATION
  Report Type: 
  Country: None (occurrence: None)
  Receive Date: 20070410
  Receipt Date: 20070403
  Transmission Date: 20071010
  Serious: Yes (Hospitalization)
  Sender: FDA-Public Use
  Company Number: 232313K07USA

PATIENT
  Age: 40 Year
  Sex: Female

DRUGS (4)
  1. REBIF [Suspect]
     Indication: MULTIPLE SCLEROSIS
     Dosage: 44 MCG, 3 IN 1 WEEKS, SUBCUTANEOUS
     Route: 058
     Dates: start: 20020823
  2. PAXIL [Concomitant]
  3. KEPPRA [Concomitant]
  4. TOPAMAX [Concomitant]

REACTIONS (1)
  - CONVULSION [None]
